FAERS Safety Report 10308761 (Version 1)
Quarter: 2014Q3

REPORT INFORMATION
  Report Type: Spontaneous
  Country: US (occurrence: None)
  Receive Date: 20140715
  Receipt Date: 20140715
  Transmission Date: 20150326
  Serious: Yes (Life-Threatening)
  Sender: FDA-Public Use
  Company Number: None

PATIENT
  Age: 92 Year
  Sex: Male
  Weight: 65.77 kg

DRUGS (2)
  1. TRAMADOL [Suspect]
     Active Substance: TRAMADOL
     Indication: PAIN
     Dosage: 1 TAB
     Route: 048
     Dates: start: 20140705, end: 20140707
  2. SERTRALINE [Concomitant]
     Active Substance: SERTRALINE HYDROCHLORIDE

REACTIONS (9)
  - Irritability [None]
  - Fall [None]
  - Serotonin syndrome [None]
  - Activities of daily living impaired [None]
  - Cervical vertebral fracture [None]
  - Myoclonus [None]
  - Disorientation [None]
  - Mental status changes [None]
  - Tremor [None]

NARRATIVE: CASE EVENT DATE: 20140709
